FAERS Safety Report 7293444-4 (Version None)
Quarter: 2011Q1

REPORT INFORMATION
  Report Type: 
  Country: None (occurrence: None)
  Receive Date: 20110215
  Receipt Date: 20110210
  Transmission Date: 20110831
  Serious: Yes (Other)
  Sender: FDA-Public Use
  Company Number: ZA-PFIZER INC-2011030669

PATIENT
  Sex: Female

DRUGS (3)
  1. EPANUTIN [Suspect]
     Indication: COMPLEX PARTIAL SEIZURES
     Dosage: 300 MG, 1X/DAY
     Route: 048
  2. ELTROXIN [Concomitant]
     Indication: HYPOTHYROIDISM
     Dosage: UNK
     Route: 048
  3. LIPITOR [Concomitant]
     Indication: TYPE IIA HYPERLIPIDAEMIA
     Dosage: UNK
     Route: 048

REACTIONS (1)
  - HEPATOMEGALY [None]
